FAERS Safety Report 5046407-3 (Version None)
Quarter: 2006Q3

REPORT INFORMATION
  Report Type: 
  Country: None (occurrence: None)
  Receive Date: 20060706
  Receipt Date: 20060706
  Transmission Date: 20061208
  Serious: Yes (Life-Threatening, Disabling)
  Sender: FDA-Public Use
  Company Number: None

PATIENT
  Sex: Male
  Weight: 77.1115 kg

DRUGS (1)
  1. CRESTOR [Suspect]
     Indication: LOW DENSITY LIPOPROTEIN INCREASED
     Dosage: ONE PER DAY PO
     Route: 048
     Dates: start: 20060629, end: 20060630

REACTIONS (5)
  - HEADACHE [None]
  - MENTAL DISORDER [None]
  - MYALGIA [None]
  - RENAL FAILURE [None]
  - RESPIRATORY DISORDER [None]
